FAERS Safety Report 5054701-5 (Version None)
Quarter: 2006Q2

REPORT INFORMATION
  Report Type: 
  Country: None (occurrence: None)
  Receive Date: 20060614
  Receipt Date: 20060228
  Transmission Date: 20061013
  Serious: No
  Sender: FDA-Public Use
  Company Number: US200603000233

PATIENT
  Age: 45 Year
  Sex: Male

DRUGS (2)
  1. CIALIS [Suspect]
     Dosage: 40 MG
     Dates: start: 20031101
  2. VICODIN [Concomitant]

REACTIONS (3)
  - DRUG INTERACTION INHIBITION [None]
  - INTENTIONAL DRUG MISUSE [None]
  - THERAPEUTIC RESPONSE DECREASED [None]
